FAERS Safety Report 4714214-4 (Version None)
Quarter: 2005Q3

REPORT INFORMATION
  Report Type: 
  Country: None (occurrence: None)
  Receive Date: 20050714
  Receipt Date: 20050622
  Transmission Date: 20060218
  Serious: Yes (Other)
  Sender: FDA-Public Use
  Company Number: 2005AC00957

PATIENT
  Age: 11956 Day
  Sex: Male
  Weight: 60 kg

DRUGS (5)
  1. SEROQUEL [Suspect]
     Indication: INSOMNIA
     Route: 048
     Dates: start: 20050614, end: 20050615
  2. SEROQUEL [Interacting]
     Indication: RESTLESSNESS
     Route: 048
     Dates: start: 20050614, end: 20050615
  3. CIPRAMIL [Interacting]
     Indication: DEPRESSION
     Route: 048
     Dates: start: 20050607
  4. CIPRAMIL [Interacting]
     Route: 048
  5. CIPRAMIL [Interacting]
     Route: 048

REACTIONS (2)
  - DRUG INTERACTION [None]
  - PRIAPISM [None]
